FAERS Safety Report 11142432 (Version 1)
Quarter: 2015Q2

REPORT INFORMATION
  Report Type: Spontaneous
  Country: BR (occurrence: BR)
  Receive Date: 20150527
  Receipt Date: 20150527
  Transmission Date: 20150821
  Serious: Yes (Hospitalization)
  Sender: FDA-Public Use
  Company Number: BR-SA-2015SA065691

PATIENT
  Sex: Female
  Weight: 75 kg

DRUGS (14)
  1. CEWIN [Concomitant]
     Active Substance: ASCORBIC ACID
     Indication: VITAMIN SUPPLEMENTATION
     Dosage: 500 MG.
     Route: 048
  2. LASIX [Concomitant]
     Active Substance: FUROSEMIDE
     Dosage: STRENGTH: 40 MG
     Route: 048
  3. LEVOID [Concomitant]
     Active Substance: LEVOTHYROXINE
     Dosage: STRENGTH: 38 MCG
     Route: 048
  4. EXODUS [Concomitant]
     Active Substance: ESCITALOPRAM OXALATE
     Dosage: STRENGTH: 10 MG
     Route: 048
  5. ATACAND [Concomitant]
     Active Substance: CANDESARTAN CILEXETIL
     Indication: HYPERTENSION
     Route: 048
  6. CALCIUM D3 [Concomitant]
     Active Substance: CALCIUM\CHOLECALCIFEROL
     Indication: VITAMIN SUPPLEMENTATION
     Dosage: CALCIO D3 (CALCIUM CARBONATE/VITAMIN D3).
     Route: 048
  7. ADALAT [Concomitant]
     Active Substance: NIFEDIPINE
     Indication: HYPERTENSION
     Dosage: DOSE: 10 DROPS DAILY (3 TIMES A DAY)
  8. PLAKETAR [Concomitant]
     Active Substance: TICLOPIDINE HYDROCHLORIDE
     Dosage: PLAKETAR (TICLOPIDINE HCL) 250 MG .
  9. LANTUS SOLOSTAR [Suspect]
     Active Substance: INSULIN GLARGINE
     Indication: DIABETES MELLITUS
     Route: 058
     Dates: start: 2007
  10. METILDOPA [Concomitant]
     Active Substance: METHYLDOPA
     Dosage: STRENGTH: 500 MG
     Route: 048
  11. APRESOLINE HYDROCHLORIDE [Concomitant]
     Active Substance: HYDRALAZINE HYDROCHLORIDE
     Indication: HYPERTENSION
     Route: 048
  12. SOLOSTAR [Concomitant]
     Active Substance: DEVICE
     Dates: start: 2007
  13. SIMVASTATIN. [Concomitant]
     Active Substance: SIMVASTATIN
     Dosage: STRENGTH: 4MG
  14. STILNOX [Concomitant]
     Active Substance: ZOLPIDEM TARTRATE
     Dosage: STRENGTH: 10 MG

REACTIONS (6)
  - Pyrexia [Recovered/Resolved]
  - Incorrect product storage [Unknown]
  - Urinary tract infection [Recovered/Resolved]
  - Wrong technique in drug usage process [Unknown]
  - Hypersensitivity [Recovered/Resolved]
  - Hyperglycaemia [Not Recovered/Not Resolved]

NARRATIVE: CASE EVENT DATE: 201504
